FAERS Safety Report 15328928 (Version 1)
Quarter: 2018Q3

REPORT INFORMATION
  Report Type: Spontaneous
  Country: FR (occurrence: FR)
  Receive Date: 20180829
  Receipt Date: 20180829
  Transmission Date: 20181010
  Serious: Yes (Other)
  Sender: FDA-Public Use
  Company Number: FR-AMGEN-FRASP2018117199

PATIENT
  Age: 24 Year
  Sex: Female

DRUGS (1)
  1. ROMIPLOSTIM [Suspect]
     Active Substance: ROMIPLOSTIM
     Indication: IMMUNE THROMBOCYTOPENIC PURPURA
     Dosage: 9 MUG/BODY WEIGHT (BW), UNK
     Route: 065

REACTIONS (3)
  - Off label use [Unknown]
  - Intracranial venous sinus thrombosis [Unknown]
  - Pulmonary embolism [Unknown]
